FAERS Safety Report 19151199 (Version 1)
Quarter: 2021Q2

REPORT INFORMATION
  Report Type: Report from Study
  Country: None (occurrence: US)
  Receive Date: 20210419
  Receipt Date: 20210419
  Transmission Date: 20210717
  Serious: Yes (Hospitalization, Other)
  Sender: FDA-Public Use
  Company Number: US-ABBVIE-21K-163-3857540-00

PATIENT
  Age: 30 Year
  Sex: Female

DRUGS (1)
  1. HUMIRA [Suspect]
     Active Substance: ADALIMUMAB
     Indication: ANKYLOSING SPONDYLITIS
     Route: 058
     Dates: start: 202103, end: 202103

REACTIONS (5)
  - Swelling [Unknown]
  - Swelling face [Unknown]
  - Hypersensitivity [Unknown]
  - Malaise [Unknown]
  - Sepsis [Unknown]

NARRATIVE: CASE EVENT DATE: 202103
